FAERS Safety Report 11254233 (Version 1)
Quarter: 2015Q3

REPORT INFORMATION
  Report Type: Spontaneous
  Country: US (occurrence: None)
  Receive Date: 20150708
  Receipt Date: 20150708
  Transmission Date: 20151125
  Serious: No
  Sender: FDA-Public Use
  Company Number: None

PATIENT
  Age: 28 Year
  Sex: Male
  Weight: 88.45 kg

DRUGS (7)
  1. OLANZAPINA [Concomitant]
     Active Substance: OLANZAPINE
  2. NEUPRO [Concomitant]
     Active Substance: ROTIGOTINE
  3. VIAGRA [Concomitant]
     Active Substance: SILDENAFIL CITRATE
  4. STELAZINE [Suspect]
     Active Substance: TRIFLUOPERAZINE HYDROCHLORIDE
     Indication: BIPOLAR DISORDER
     Dates: start: 1988, end: 2007
  5. ATOVASTATIN [Concomitant]
     Active Substance: ATORVASTATIN
  6. SINEMET [Concomitant]
     Active Substance: CARBIDOPA\LEVODOPA
  7. STELAZINE [Suspect]
     Active Substance: TRIFLUOPERAZINE HYDROCHLORIDE
     Indication: DEPRESSION
     Dates: start: 1988, end: 2007

REACTIONS (4)
  - Tremor [None]
  - Muscle spasms [None]
  - Muscle twitching [None]
  - Blepharospasm [None]
